FAERS Safety Report 18276810 (Version 1)
Quarter: 2020Q3

REPORT INFORMATION
  Report Type: Spontaneous
  Country: US (occurrence: US)
  Receive Date: 20200917
  Receipt Date: 20200917
  Transmission Date: 20201103
  Serious: Yes (Hospitalization, Other)
  Sender: FDA-Public Use
  Company Number: US-AUROBINDO-AUR-APL-2018-006574

PATIENT
  Age: 62 Year
  Sex: Female

DRUGS (6)
  1. FUROSEMIDE. [Suspect]
     Active Substance: FUROSEMIDE
     Dosage: 58 DF, UNK
     Route: 065
  2. CLONIDINE TABLET 0.2 MG [Suspect]
     Active Substance: CLONIDINE
     Indication: HOT FLUSH
     Dosage: 0.2 MILLIGRAM AS NEEDED
     Route: 065
  3. TAMOXIFEN [Concomitant]
     Active Substance: TAMOXIFEN
     Indication: PRODUCT USED FOR UNKNOWN INDICATION
     Dosage: 10 MILLIGRAM, TWO TIMES A DAY
     Route: 065
  4. CLONIDINE TABLET 0.2 MG [Suspect]
     Active Substance: CLONIDINE
     Dosage: 42 DOSAGE FORM
     Route: 065
  5. ACETAMINOPHEN. [Suspect]
     Active Substance: ACETAMINOPHEN
     Indication: PRODUCT USED FOR UNKNOWN INDICATION
     Dosage: UNK
     Route: 065
  6. FUROSEMIDE. [Suspect]
     Active Substance: FUROSEMIDE
     Indication: PRODUCT USED FOR UNKNOWN INDICATION
     Dosage: 40 MILLIGRAM, ONCE A DAY
     Route: 065

REACTIONS (10)
  - Suicide attempt [Recovered/Resolved]
  - Hypotension [Recovered/Resolved]
  - Hypothermia [Recovered/Resolved]
  - Blood creatine phosphokinase increased [Recovered/Resolved]
  - Bradycardia [Recovered/Resolved]
  - Analgesic drug level increased [Recovered/Resolved]
  - Loss of consciousness [Recovered/Resolved]
  - Amylase increased [Recovered/Resolved]
  - Blood glucose increased [Recovered/Resolved]
  - Overdose [Unknown]
